FAERS Safety Report 20831778 (Version 1)
Quarter: 2022Q2

REPORT INFORMATION
  Report Type: Spontaneous
  Country: US (occurrence: None)
  Receive Date: 20220516
  Receipt Date: 20220516
  Transmission Date: 20220721
  Serious: No
  Sender: FDA-Public Use
  Company Number: 2022A155350

PATIENT
  Age: 66 Year
  Sex: Female
  Weight: 58.5 kg

DRUGS (1)
  1. FARXIGA [Suspect]
     Active Substance: DAPAGLIFLOZIN PROPANEDIOL
     Indication: Chronic kidney disease
     Route: 048
     Dates: start: 20220215, end: 20220416

REACTIONS (3)
  - Blood creatinine increased [Unknown]
  - Water pollution [Unknown]
  - Product prescribing issue [Unknown]

NARRATIVE: CASE EVENT DATE: 20220215
